FAERS Safety Report 4274362-2 (Version None)
Quarter: 2004Q1

REPORT INFORMATION
  Report Type: 
  Country: None (occurrence: None)
  Receive Date: 20040115
  Receipt Date: 20040105
  Transmission Date: 20041129
  Serious: Yes (Hospitalization)
  Sender: FDA-Public Use
  Company Number: 04P-161-0246497-00

PATIENT
  Age: 40 Year
  Sex: Male

DRUGS (5)
  1. COLCHICINE (COLCHICINE) (COLCHICINE) [Suspect]
     Dosage: 0.5 MG, 1 IN 8 HR, PER ORAL; 0.5 MG, 1 IN 12 HR, PER ORAL
     Route: 048
     Dates: start: 19980101, end: 20010901
  2. COLCHICINE (COLCHICINE) (COLCHICINE) [Suspect]
     Dosage: 0.5 MG, 1 IN 8 HR, PER ORAL; 0.5 MG, 1 IN 12 HR, PER ORAL
     Route: 048
     Dates: start: 20010101
  3. GEMFIBROZIL [Suspect]
     Dosage: 600 MG, 1 IN 12 HR, PER ORAL
     Route: 048
     Dates: start: 20010801, end: 20010901
  4. ESSENTIAL AMINO ACID TABLETS [Concomitant]
  5. CALCITRIOL [Concomitant]

REACTIONS (6)
  - ANOREXIA [None]
  - BLOOD ALKALINE PHOSPHATASE INCREASED [None]
  - FATIGUE [None]
  - GAMMA-GLUTAMYLTRANSFERASE INCREASED [None]
  - HEPATITIS B SURFACE ANTIGEN POSITIVE [None]
  - RHABDOMYOLYSIS [None]
